FAERS Safety Report 7335276-4 (Version None)
Quarter: 2011Q1

REPORT INFORMATION
  Report Type: 
  Country: None (occurrence: None)
  Receive Date: 20110307
  Receipt Date: 20110228
  Transmission Date: 20110831
  Serious: Yes (Other)
  Sender: FDA-Public Use
  Company Number: US-PFIZER INC-2011046950

PATIENT
  Sex: Male
  Weight: 103 kg

DRUGS (1)
  1. PENICILLIN G PROCAINE [Suspect]

REACTIONS (1)
  - DRUG HYPERSENSITIVITY [None]
